FAERS Safety Report 15288070 (Version 1)
Quarter: 2018Q3

REPORT INFORMATION
  Report Type: Spontaneous
  Country: US (occurrence: US)
  Receive Date: 20180802
  Receipt Date: 20180802
  Transmission Date: 20181010
  Serious: Yes (Hospitalization)
  Sender: FDA-Public Use
  Company Number: None

PATIENT
  Age: 66 Year
  Sex: Female

DRUGS (14)
  1. CIMZIA PREFL KIT 200MG/ML [Concomitant]
  2. AMLODIPINE TAB 10MG [Concomitant]
  3. LISINOPRIL TAB 20MG [Concomitant]
     Active Substance: LISINOPRIL
  4. HYDROCHLOROT TAB 25MG [Concomitant]
  5. METOPROL TAR TAB 25MG [Concomitant]
  6. INSULIN SYRG MIS 1ML/27G [Concomitant]
  7. METHORTEXATE INJ 25MG/ML [Concomitant]
  8. OMEPRAZOLE CAP 40MG [Concomitant]
     Active Substance: OMEPRAZOLE
  9. DILTIAZEM CAP 180MG ER [Concomitant]
  10. NAPROXEN TAB 500MG [Concomitant]
  11. VESICARE TAB 10MG [Concomitant]
  12. ELIQUIS TAB 5MG [Concomitant]
  13. CIMZIA [Suspect]
     Active Substance: CERTOLIZUMAB PEGOL
     Indication: RHEUMATOID ARTHRITIS
     Dosage: ?          OTHER FREQUENCY:MONTHLY;?
     Route: 058
     Dates: start: 20180126
  14. ESOMEPRA MAG CAP 20MG DR [Concomitant]

REACTIONS (2)
  - Hernia repair [None]
  - Atrial fibrillation [None]

NARRATIVE: CASE EVENT DATE: 20180628
